FAERS Safety Report 11614575 (Version 2)
Quarter: 2016Q2

REPORT INFORMATION
  Report Type: Report from Study
  Country: GB (occurrence: GB)
  Receive Date: 20151009
  Receipt Date: 20160427
  Transmission Date: 20160815
  Serious: Yes (Other)
  Sender: FDA-Public Use
  Company Number: GB-ROCHE-1643847

PATIENT
  Sex: Female

DRUGS (1)
  1. ROACTEMRA [Suspect]
     Active Substance: TOCILIZUMAB
     Indication: RHEUMATOID ARTHRITIS
     Route: 058
     Dates: start: 20150914

REACTIONS (1)
  - Thrombosis [Unknown]
